FAERS Safety Report 7656281-4 (Version None)
Quarter: 2011Q3

REPORT INFORMATION
  Report Type: 
  Country: None (occurrence: None)
  Receive Date: 20110804
  Receipt Date: 20070806
  Transmission Date: 20111222
  Serious: Yes (Hospitalization)
  Sender: FDA-Public Use
  Company Number: US-GLAXOSMITHKLINE-A0668335A

PATIENT
  Age: 66 Year
  Sex: Female

DRUGS (1)
  1. ALLI [Suspect]
     Indication: WEIGHT LOSS DIET
     Route: 048
     Dates: start: 20070615, end: 20070709

REACTIONS (6)
  - MUSCULOSKELETAL CHEST PAIN [None]
  - RHEUMATOID ARTHRITIS [None]
  - JOINT SWELLING [None]
  - JOINT STIFFNESS [None]
  - DYSPNOEA [None]
  - RECTAL DISCHARGE [None]
